FAERS Safety Report 8516205-4 (Version None)
Quarter: 2012Q3

REPORT INFORMATION
  Report Type: 
  Country: None (occurrence: None)
  Receive Date: 20120717
  Receipt Date: 20120710
  Transmission Date: 20120928
  Serious: Yes (Other)
  Sender: FDA-Public Use
  Company Number: CA-ROCHE-1087425

PATIENT
  Sex: Female
  Weight: 39.044 kg

DRUGS (9)
  1. ACTEMRA [Suspect]
     Dates: start: 20111212
  2. CALCITONIN SALMON [Concomitant]
  3. PREDNISONE [Concomitant]
  4. ACTEMRA [Suspect]
     Dates: start: 20111012
  5. METHOTREXATE [Concomitant]
  6. FOLIC ACID [Concomitant]
  7. ACTEMRA [Suspect]
     Indication: RHEUMATOID ARTHRITIS
     Route: 042
     Dates: start: 20101121
  8. ENTERIC COATED ACETYLSALICYLIC ACID [Concomitant]
  9. CELEBREX [Concomitant]

REACTIONS (4)
  - OEDEMA PERIPHERAL [None]
  - WEIGHT DECREASED [None]
  - PAIN IN EXTREMITY [None]
  - FULL BLOOD COUNT DECREASED [None]
